FAERS Safety Report 9899398 (Version 3)
Quarter: 2014Q1

REPORT INFORMATION
  Report Type: Spontaneous
  Country: US (occurrence: US)
  Receive Date: 20140214
  Receipt Date: 20140228
  Transmission Date: 20141002
  Serious: Yes (Hospitalization, Other)
  Sender: FDA-Public Use
  Company Number: US-009507513-1203USA02658

PATIENT
  Sex: Female
  Weight: 60.77 kg

DRUGS (3)
  1. FOSAMAX [Suspect]
     Indication: PRODUCT USED FOR UNKNOWN INDICATION
     Dosage: 10 MG, DAILY
     Route: 048
  2. FOSAMAX [Suspect]
     Dosage: 70 MG, UNK
     Route: 048
  3. ALENDRONATE SODIUM [Suspect]
     Indication: PRODUCT USED FOR UNKNOWN INDICATION
     Dosage: 70 MG, UNK
     Route: 048
     Dates: start: 20080708

REACTIONS (29)
  - Femur fracture [Unknown]
  - Intramedullary rod insertion [Unknown]
  - Skin graft [Unknown]
  - Arthrodesis [Unknown]
  - Adenocarcinoma of colon [Unknown]
  - Metastases to lymph nodes [Unknown]
  - Sigmoidectomy [Unknown]
  - Metastases to liver [Unknown]
  - Fall [Unknown]
  - Osteoarthritis [Unknown]
  - Loose body in joint [Unknown]
  - Bone cyst [Unknown]
  - Hypertension [Unknown]
  - Hypercholesterolaemia [Unknown]
  - Hypothyroidism [Unknown]
  - Stress urinary incontinence [Unknown]
  - Cystocele [Unknown]
  - Osteopenia [Unknown]
  - Osteoarthritis [Unknown]
  - Bunion operation [Unknown]
  - Cystopexy [Unknown]
  - Adenotonsillectomy [Unknown]
  - Change of bowel habit [Unknown]
  - Inguinal hernia repair [Unknown]
  - Contusion [Unknown]
  - Excoriation [Unknown]
  - Chronic obstructive pulmonary disease [Not Recovered/Not Resolved]
  - Laceration [Unknown]
  - Radius fracture [Unknown]
